FAERS Safety Report 14933247 (Version 2)
Quarter: 2018Q3

REPORT INFORMATION
  Report Type: Spontaneous
  Country: US (occurrence: US)
  Receive Date: 20180524
  Receipt Date: 20180808
  Transmission Date: 20181010
  Serious: Yes (Other)
  Sender: FDA-Public Use
  Company Number: US-009507513-1805USA008533

PATIENT
  Age: 69 Year
  Sex: Male

DRUGS (7)
  1. NORVASC [Concomitant]
     Active Substance: AMLODIPINE BESYLATE
     Indication: HYPERTENSION
     Dosage: UNK
  2. KEYTRUDA [Suspect]
     Active Substance: PEMBROLIZUMAB
     Dosage: 200 MG, Q3W
     Route: 042
     Dates: start: 2018, end: 2018
  3. KEYTRUDA [Suspect]
     Active Substance: PEMBROLIZUMAB
     Indication: TRANSITIONAL CELL CARCINOMA
     Dosage: 200 MG, Q3W
     Route: 042
     Dates: start: 20180221, end: 201802
  4. KEYTRUDA [Suspect]
     Active Substance: PEMBROLIZUMAB
     Dosage: 200 MG, Q3W
     Route: 042
     Dates: start: 20180518
  5. IRON (UNSPECIFIED) [Concomitant]
     Active Substance: IRON
     Dosage: UNK
  6. KEYTRUDA [Suspect]
     Active Substance: PEMBROLIZUMAB
     Dosage: 200 MG, Q3W
     Route: 042
     Dates: start: 2018, end: 2018
  7. KEYTRUDA [Suspect]
     Active Substance: PEMBROLIZUMAB
     Dosage: 200 MG, Q3W
     Route: 042
     Dates: start: 2018, end: 2018

REACTIONS (4)
  - Hypercholesterolaemia [Unknown]
  - Pruritus [Not Recovered/Not Resolved]
  - Renal impairment [Unknown]
  - Skin discolouration [Not Recovered/Not Resolved]

NARRATIVE: CASE EVENT DATE: 201804
